FAERS Safety Report 20913832 (Version 1)
Quarter: 2022Q2

REPORT INFORMATION
  Report Type: Report from Study
  Country: US (occurrence: US)
  Receive Date: 20220604
  Receipt Date: 20220604
  Transmission Date: 20220721
  Serious: Yes (Other)
  Sender: FDA-Public Use
  Company Number: US-TEVA-2022-US-2042701

PATIENT
  Age: 40 Year
  Sex: Female

DRUGS (3)
  1. CLARAVIS [Suspect]
     Active Substance: ISOTRETINOIN
     Dosage: FORM STRENGTH AND UNIT DOSE: 40 MG
     Route: 065
     Dates: start: 202112
  2. CLARAVIS [Suspect]
     Active Substance: ISOTRETINOIN
     Dosage: 80 MILLIGRAM DAILY; FORM STRENGTH AND UNIT DOSE: 40 MG
     Route: 065
     Dates: start: 20220203, end: 20220303
  3. CLARAVIS [Suspect]
     Active Substance: ISOTRETINOIN
     Dosage: FORM STRENGTH AND UNIT DOSE: 40 MG
     Route: 065
     Dates: start: 20220407, end: 20220512

REACTIONS (1)
  - Unintended pregnancy [Unknown]

NARRATIVE: CASE EVENT DATE: 20220415
